FAERS Safety Report 15234295 (Version 1)
Quarter: 2018Q3

REPORT INFORMATION
  Report Type: Spontaneous
  Country: NL (occurrence: NL)
  Receive Date: 20180803
  Receipt Date: 20180803
  Transmission Date: 20181010
  Serious: Yes (Hospitalization)
  Sender: FDA-Public Use
  Company Number: NL-CONCORDIA PHARMACEUTICALS INC.-E2B_00015150

PATIENT
  Age: 59 Year
  Sex: Male
  Weight: 60 kg

DRUGS (6)
  1. QUETIAPINE IR 300MG [Concomitant]
     Dosage: 1DD1
  2. TRAZODON 100MG [Concomitant]
     Dosage: 1DD1
  3. ZOPICLON 7,5MG [Concomitant]
     Dosage: 1DD1
  4. TRANYLCYPROMINE [Suspect]
     Active Substance: TRANYLCYPROMINE
     Indication: DEPRESSION
     Dosage: 60MG
     Dates: start: 20161201, end: 20170320
  5. OXAZEPAM 10MG [Concomitant]
     Active Substance: OXAZEPAM
     Dosage: ZN
  6. ENALAPRIL 10MG [Concomitant]
     Active Substance: ENALAPRIL
     Dosage: 1DD1

REACTIONS (3)
  - Muscle spasms [Not Recovered/Not Resolved]
  - Therapeutic response unexpected [Not Recovered/Not Resolved]
  - Paraesthesia [Not Recovered/Not Resolved]

NARRATIVE: CASE EVENT DATE: 20170301
